FAERS Safety Report 6241017-4 (Version None)
Quarter: 2009Q2

REPORT INFORMATION
  Report Type: 
  Country: None (occurrence: None)
  Receive Date: 20090623
  Receipt Date: 20090616
  Transmission Date: 20091009
  Serious: Yes (Hospitalization)
  Sender: FDA-Public Use
  Company Number: B0580058A

PATIENT
  Sex: Male

DRUGS (1)
  1. AUGMENTIN '125' [Suspect]
     Indication: DRUG USE FOR UNKNOWN INDICATION
     Dosage: 1G TWICE PER DAY
     Route: 065
     Dates: start: 20090517, end: 20090524

REACTIONS (4)
  - AURICULAR SWELLING [None]
  - RASH GENERALISED [None]
  - RASH PAPULAR [None]
  - SWELLING FACE [None]
